FAERS Safety Report 16031359 (Version 2)
Quarter: 2019Q1

REPORT INFORMATION
  Report Type: Spontaneous
  Country: TR (occurrence: TR)
  Receive Date: 20190304
  Receipt Date: 20190304
  Transmission Date: 20190418
  Serious: Yes (Death)
  Sender: FDA-Public Use
  Company Number: PHHY2019TR048016

PATIENT
  Age: 68 Year
  Sex: Female

DRUGS (3)
  1. CYCLOPHOSPHAMIDE. [Suspect]
     Active Substance: CYCLOPHOSPHAMIDE
     Indication: ANGIOIMMUNOBLASTIC T-CELL LYMPHOMA
     Dosage: UNK
     Route: 065
  2. PREDNISOLONE. [Suspect]
     Active Substance: PREDNISOLONE
     Indication: ANGIOIMMUNOBLASTIC T-CELL LYMPHOMA
     Dosage: UNK
     Route: 065
  3. VINCRISTINE [Suspect]
     Active Substance: VINCRISTINE
     Indication: ANGIOIMMUNOBLASTIC T-CELL LYMPHOMA
     Dosage: UNK
     Route: 065

REACTIONS (7)
  - Second primary malignancy [Fatal]
  - Skin plaque [Fatal]
  - Sepsis [Fatal]
  - Diffuse large B-cell lymphoma [Fatal]
  - Pruritus [Fatal]
  - Erythema [Fatal]
  - Epstein-Barr virus infection [Fatal]
